FAERS Safety Report 13513554 (Version 1)
Quarter: 2017Q2

REPORT INFORMATION
  Report Type: Spontaneous
  Country: US (occurrence: US)
  Receive Date: 20170504
  Receipt Date: 20170504
  Transmission Date: 20170830
  Serious: Yes (Hospitalization)
  Sender: FDA-Public Use
  Company Number: US-DEPOMED, INC.-US-2017DEP000889

PATIENT

DRUGS (2)
  1. METHADONE [Concomitant]
     Active Substance: METHADONE HYDROCHLORIDE
     Indication: BLADDER PAIN
     Dosage: 10 MG, QID
     Route: 048
  2. NUCYNTA [Suspect]
     Active Substance: TAPENTADOL HYDROCHLORIDE
     Indication: BLADDER PAIN
     Dosage: 1 1/2 TABLET ONCE EVERY 4-6 HRS
     Route: 048
     Dates: start: 2012

REACTIONS (4)
  - Neck pain [Recovering/Resolving]
  - Drug effect decreased [Unknown]
  - Cystitis [Recovering/Resolving]
  - Fine motor skill dysfunction [Recovering/Resolving]

NARRATIVE: CASE EVENT DATE: 20150426
